FAERS Safety Report 7753251-2 (Version None)
Quarter: 2011Q3

REPORT INFORMATION
  Report Type: 
  Country: None (occurrence: None)
  Receive Date: 20110915
  Receipt Date: 20110620
  Transmission Date: 20111222
  Serious: No
  Sender: FDA-Public Use
  Company Number: US-GLAXOSMITHKLINE-A0932019A

PATIENT
  Age: 69 Year
  Sex: Female

DRUGS (2)
  1. NICODERM CQ [Suspect]
     Indication: EX-TOBACCO USER
     Dates: start: 20110615
  2. NICORETTE [Suspect]
     Indication: EX-TOBACCO USER
     Dates: start: 20110604, end: 20110607

REACTIONS (7)
  - ABDOMINAL DISCOMFORT [None]
  - APPLICATION SITE ERYTHEMA [None]
  - APPLICATION SITE WARMTH [None]
  - OEDEMA PERIPHERAL [None]
  - OVERDOSE [None]
  - APPLICATION SITE PAIN [None]
  - DIZZINESS [None]
